FAERS Safety Report 8111597-2 (Version None)
Quarter: 2012Q1

REPORT INFORMATION
  Report Type: 
  Country: None (occurrence: None)
  Receive Date: 20120203
  Receipt Date: 20120106
  Transmission Date: 20120608
  Serious: No
  Sender: FDA-Public Use
  Company Number: JP-TEVA-2011001803

PATIENT
  Age: 72 Year
  Sex: Male

DRUGS (2)
  1. BENDAMUSTINE [Suspect]
     Indication: MANTLE CELL LYMPHOMA
     Dosage: 120 MG/M2;
     Route: 042
     Dates: start: 20110328, end: 20110329
  2. BENDAMUSTINE [Suspect]
     Dosage: 120 MG/M2;
     Route: 042
     Dates: start: 20110315, end: 20110316

REACTIONS (1)
  - BLOOD CREATININE INCREASED [None]
